FAERS Safety Report 16288303 (Version 2)
Quarter: 2019Q2

REPORT INFORMATION
  Report Type: Spontaneous
  Country: DE (occurrence: DE)
  Receive Date: 20190508
  Receipt Date: 20190527
  Transmission Date: 20190711
  Serious: Yes (Other)
  Sender: FDA-Public Use
  Company Number: DE-ABBVIE-19K-062-2769764-00

PATIENT
  Sex: Female
  Weight: 84 kg

DRUGS (2)
  1. HUMIRA [Suspect]
     Active Substance: ADALIMUMAB
     Indication: PSORIATIC ARTHROPATHY
  2. HUMIRA [Suspect]
     Active Substance: ADALIMUMAB
     Indication: PSORIASIS
     Route: 058
     Dates: start: 2009, end: 20190429

REACTIONS (14)
  - Pulmonary fibrosis [Not Recovered/Not Resolved]
  - Bronchial wall thickening [Unknown]
  - Bronchiectasis [Unknown]
  - Palpitations [Unknown]
  - Goitre [Unknown]
  - Bronchitis [Unknown]
  - Bronchial disorder [Unknown]
  - Pericardial effusion [Unknown]
  - Bronchial oedema [Unknown]
  - Pleural calcification [Unknown]
  - Aortic dilatation [Unknown]
  - Asthma [Unknown]
  - Chronic obstructive pulmonary disease [Unknown]
  - Spinal osteoarthritis [Unknown]
